FAERS Safety Report 19357690 (Version 1)
Quarter: 2021Q2

REPORT INFORMATION
  Report Type: Spontaneous
  Country: US (occurrence: US)
  Receive Date: 20210602
  Receipt Date: 20210602
  Transmission Date: 20210717
  Serious: No
  Sender: FDA-Public Use
  Company Number: US-SUN PHARMACEUTICAL INDUSTRIES LTD-2020R1-258662

PATIENT

DRUGS (1)
  1. HALOG [Suspect]
     Active Substance: HALCINONIDE
     Indication: PRODUCT USED FOR UNKNOWN INDICATION
     Dosage: UNK, FIRST TIME LAST NIGHT
     Route: 065
     Dates: start: 202008

REACTIONS (1)
  - Seborrhoea [Unknown]

NARRATIVE: CASE EVENT DATE: 202008
